FAERS Safety Report 9867249 (Version 2)
Quarter: 2014Q2

REPORT INFORMATION
  Report Type: Spontaneous
  Country: IT (occurrence: IT)
  Receive Date: 20140204
  Receipt Date: 20140407
  Transmission Date: 20141212
  Serious: Yes (Other)
  Sender: FDA-Public Use
  Company Number: IT-JNJFOC-20140113810

PATIENT
  Age: 72 Year
  Sex: Female
  Weight: 86 kg

DRUGS (1)
  1. CAELYX (DOXORUBICIN HYDROCHLORIDE) [Suspect]
     Indication: BREAST CANCER
     Route: 042
     Dates: start: 20140122, end: 20140122

REACTIONS (1)
  - Pain in extremity [Recovered/Resolved]
